FAERS Safety Report 14889982 (Version 1)
Quarter: 2018Q2

REPORT INFORMATION
  Report Type: Spontaneous
  Country: CN (occurrence: CN)
  Receive Date: 20180514
  Receipt Date: 20180514
  Transmission Date: 20180711
  Serious: Yes (Other)
  Sender: FDA-Public Use
  Company Number: CN-ACCORD-066900

PATIENT
  Age: 49 Year
  Sex: Male

DRUGS (5)
  1. TEGAFUR/GIMERACIL/OTERACIL POTASSIUM [Suspect]
     Active Substance: GIMERACIL\OTERACIL\TEGAFUR
     Indication: SIGNET-RING CELL CARCINOMA
     Dosage: 2 CYCLES
     Dates: start: 201703
  2. FLUOROURACIL. [Suspect]
     Active Substance: FLUOROURACIL
     Indication: SIGNET-RING CELL CARCINOMA
     Dosage: 3 CYCLES
     Dates: end: 201703
  3. CISPLATIN. [Suspect]
     Active Substance: CISPLATIN
     Indication: SIGNET-RING CELL CARCINOMA
     Dosage: 3 CYCLES
     Dates: end: 201703
  4. DOCETAXEL. [Suspect]
     Active Substance: DOCETAXEL
     Indication: SIGNET-RING CELL CARCINOMA
     Dosage: 3 CYCLES
     Dates: end: 201703
  5. OXALIPLATIN. [Suspect]
     Active Substance: OXALIPLATIN
     Indication: SIGNET-RING CELL CARCINOMA
     Dosage: 2 CYCLES
     Dates: start: 201703

REACTIONS (2)
  - Dystrophic calcification [Unknown]
  - Necrosis ischaemic [Unknown]
